FAERS Safety Report 15696754 (Version 3)
Quarter: 2019Q3

REPORT INFORMATION
  Report Type: Spontaneous
  Country: US (occurrence: US)
  Receive Date: 20181206
  Receipt Date: 20190719
  Transmission Date: 20191004
  Serious: Yes (Hospitalization)
  Sender: FDA-Public Use
  Company Number: US-PFIZER INC-2018494114

PATIENT
  Age: 66 Year
  Sex: Female

DRUGS (1)
  1. XELJANZ XR [Suspect]
     Active Substance: TOFACITINIB CITRATE
     Dosage: 11 MG, UNK

REACTIONS (6)
  - Condition aggravated [Unknown]
  - Loss of personal independence in daily activities [Unknown]
  - Femur fracture [Unknown]
  - Pain [Recovering/Resolving]
  - Gait disturbance [Unknown]
  - Candida infection [Unknown]
